FAERS Safety Report 21723921 (Version 1)
Quarter: 2022Q4

REPORT INFORMATION
  Report Type: Spontaneous
  Country: US (occurrence: None)
  Receive Date: 20221212
  Receipt Date: 20221212
  Transmission Date: 20230112
  Serious: Yes (Hospitalization)
  Sender: FDA-Public Use
  Company Number: None

PATIENT
  Age: 95 Year
  Sex: Female
  Weight: 36.29 kg

DRUGS (1)
  1. PAXLOVID [Suspect]
     Active Substance: NIRMATRELVIR\RITONAVIR
     Dosage: OTHER QUANTITY : 300/100 ;?FREQUENCY : TWICE A DAY;?
     Route: 048
     Dates: start: 20221207, end: 20221212

REACTIONS (5)
  - Asthenia [None]
  - Back pain [None]
  - Diarrhoea [None]
  - Decreased appetite [None]
  - Taste disorder [None]

NARRATIVE: CASE EVENT DATE: 20221209
